FAERS Safety Report 7128056-6 (Version None)
Quarter: 2010Q4

REPORT INFORMATION
  Report Type: 
  Country: None (occurrence: None)
  Receive Date: 20101112
  Receipt Date: 20101105
  Transmission Date: 20110411
  Serious: Yes (Hospitalization, Other)
  Sender: FDA-Public Use
  Company Number: 2010SP004919

PATIENT
  Age: 28 Year
  Sex: Female
  Weight: 72.5755 kg

DRUGS (1)
  1. NUVARING [Suspect]
     Indication: CONTRACEPTION
     Dates: start: 20060101, end: 20080601

REACTIONS (11)
  - ACTIVITIES OF DAILY LIVING IMPAIRED [None]
  - HAEMORRHOIDS [None]
  - INJURY [None]
  - JOINT SPRAIN [None]
  - LIGAMENT SPRAIN [None]
  - MUSCULOSKELETAL DISORDER [None]
  - OSTEOARTHRITIS [None]
  - PULMONARY EMBOLISM [None]
  - PULMONARY HAEMORRHAGE [None]
  - SMEAR CERVIX ABNORMAL [None]
  - URINARY TRACT INFECTION [None]
